FAERS Safety Report 5186479-9 (Version None)
Quarter: 2006Q4

REPORT INFORMATION
  Report Type: 
  Country: None (occurrence: None)
  Receive Date: 20061220
  Receipt Date: 20061208
  Transmission Date: 20070319
  Serious: Yes (Other)
  Sender: FDA-Public Use
  Company Number: JP-BOEHRINGER INGELHEIM PHARMACEUTICALS, INC.-2006-DE-06758GL

PATIENT
  Sex: Female

DRUGS (9)
  1. TELMISARTAN [Suspect]
     Indication: HYPERTENSION
     Route: 048
  2. PAROXETINE HCL [Suspect]
     Indication: DEPRESSION
     Route: 048
     Dates: start: 20060508
  3. NIFEDIPINE [Suspect]
     Indication: HYPERTENSION
     Route: 048
  4. TRAZODONE HCL [Concomitant]
  5. ZOPICLONE [Concomitant]
  6. DRUG NOT FURTHER SPECIFIED [Concomitant]
  7. MANIDIPINE [Concomitant]
  8. CLONAZEPAM [Concomitant]
  9. OLANZAPINE [Concomitant]

REACTIONS (2)
  - BRADYCARDIA [None]
  - LOSS OF CONSCIOUSNESS [None]
